FAERS Safety Report 5370467-3 (Version None)
Quarter: 2007Q2

REPORT INFORMATION
  Report Type: 
  Country: None (occurrence: None)
  Receive Date: 20070626
  Receipt Date: 20070314
  Transmission Date: 20071010
  Serious: No
  Sender: FDA-Public Use
  Company Number: US-AMGEN-US213481

PATIENT
  Sex: Male
  Weight: 68.3 kg

DRUGS (7)
  1. ARANESP [Suspect]
     Indication: RENAL FAILURE CHRONIC
     Route: 065
     Dates: start: 20050331
  2. FLOMAX [Concomitant]
     Route: 065
  3. DILACOR XR [Concomitant]
     Route: 065
  4. ASPIRIN [Concomitant]
     Route: 065
  5. RHINOCORT [Concomitant]
     Route: 065
  6. PRILOSEC [Concomitant]
     Route: 065
  7. VITAMIN CAP [Concomitant]
     Route: 065

REACTIONS (4)
  - CHEST PAIN [None]
  - DYSPNOEA [None]
  - FATIGUE [None]
  - GENERALISED OEDEMA [None]
